FAERS Safety Report 9780052 (Version 1)
Quarter: 2013Q4

REPORT INFORMATION
  Report Type: Spontaneous
  Country: IT (occurrence: IT)
  Receive Date: 20131223
  Receipt Date: 20131223
  Transmission Date: 20140711
  Serious: Yes (Hospitalization)
  Sender: FDA-Public Use
  Company Number: IT-BAXTER-2013BAX051829

PATIENT
  Age: 65 Year
  Sex: Male

DRUGS (3)
  1. HOLOXAN [Suspect]
     Indication: SARCOMA
     Route: 042
     Dates: start: 20131210, end: 20131211
  2. UROMITEXAN [Suspect]
     Indication: SARCOMA
     Route: 042
     Dates: start: 20131210, end: 20131211
  3. EPIRUBICIN TEVA [Suspect]
     Indication: SARCOMA
     Dosage: 60 MG/SQUARE METER OF BODY SURFACE
     Route: 042
     Dates: start: 20131210, end: 20131211

REACTIONS (1)
  - Neurotoxicity [Recovering/Resolving]
